FAERS Safety Report 19484164 (Version 1)
Quarter: 2021Q3

REPORT INFORMATION
  Report Type: Spontaneous
  Country: US (occurrence: US)
  Receive Date: 20210701
  Receipt Date: 20210701
  Transmission Date: 20211014
  Serious: Yes (Other)
  Sender: FDA-Public Use
  Company Number: US-SA-2021SA210937

PATIENT
  Age: 70 Year
  Sex: Female

DRUGS (1)
  1. LEFLUNOMIDE. [Suspect]
     Active Substance: LEFLUNOMIDE
     Indication: RHEUMATOID ARTHRITIS
     Dosage: UNK

REACTIONS (7)
  - Actinomycotic pulmonary infection [Recovering/Resolving]
  - Weight decreased [Recovering/Resolving]
  - Productive cough [Recovering/Resolving]
  - Condition aggravated [Recovering/Resolving]
  - Pulmonary mass [Recovering/Resolving]
  - Granuloma [Recovering/Resolving]
  - Dyspnoea exertional [Recovering/Resolving]
